FAERS Safety Report 7049547-2 (Version None)
Quarter: 2010Q4

REPORT INFORMATION
  Report Type: 
  Country: None (occurrence: None)
  Receive Date: 20101018
  Receipt Date: 20101008
  Transmission Date: 20110411
  Serious: Yes (Other)
  Sender: FDA-Public Use
  Company Number: B0679506A

PATIENT
  Age: 45 Year
  Sex: Male

DRUGS (1)
  1. NIQUITIN CQ 4MG LOZENGE [Suspect]
     Dosage: 4MG PER DAY
     Route: 002

REACTIONS (2)
  - BLOOD CHOLESTEROL INCREASED [None]
  - TRANSAMINASES INCREASED [None]
